FAERS Safety Report 5099347-8 (Version None)
Quarter: 2006Q3

REPORT INFORMATION
  Report Type: 
  Country: None (occurrence: None)
  Receive Date: 20060728
  Receipt Date: 20060321
  Transmission Date: 20061208
  Serious: Yes (Other)
  Sender: FDA-Public Use
  Company Number: US-JNJFOC-20060305303

PATIENT
  Age: 7 Year
  Sex: Female
  Weight: 27.2158 kg

DRUGS (1)
  1. CHILDREN'S MOTRIN BUBBLE GUM ORAL (IBUPROFEN) SUSPENSION [Suspect]
     Indication: PYREXIA
     Dates: start: 20060320, end: 20060320

REACTIONS (1)
  - HYPERSENSITIVITY [None]
